FAERS Safety Report 24223177 (Version 1)
Quarter: 2024Q3

REPORT INFORMATION
  Report Type: Spontaneous
  Country: PL (occurrence: PL)
  Receive Date: 20240819
  Receipt Date: 20240819
  Transmission Date: 20241016
  Serious: Yes (Life-Threatening, Hospitalization)
  Sender: MYLAN
  Company Number: PL-ARISTO PHARMA-CEFU202407221

PATIENT
  Age: 57 Year
  Sex: Female

DRUGS (15)
  1. CEFUROXIME [Suspect]
     Active Substance: CEFUROXIME
     Indication: Bullous erysipelas
     Dosage: UNK
     Route: 065
  2. CEFUROXIME [Suspect]
     Active Substance: CEFUROXIME
     Indication: Escherichia infection
  3. TACROLIMUS [Suspect]
     Active Substance: TACROLIMUS
     Indication: Immunosuppressant drug therapy
     Dosage: UNK
     Route: 065
  4. IMIPENEM [Suspect]
     Active Substance: IMIPENEM
     Indication: Escherichia infection
     Dosage: UNK
     Route: 065
  5. IMIPENEM [Suspect]
     Active Substance: IMIPENEM
     Indication: Bullous erysipelas
  6. MYCOPHENOLATE MOFETIL [Suspect]
     Active Substance: MYCOPHENOLATE MOFETIL
     Indication: Immunosuppressant drug therapy
     Dosage: UNK
     Route: 065
  7. TAZOBACTAM [Suspect]
     Active Substance: TAZOBACTAM
     Indication: Product used for unknown indication
     Dosage: UNK
     Route: 065
  8. PIPERACILLIN [Suspect]
     Active Substance: PIPERACILLIN
     Indication: Escherichia infection
     Dosage: UNK
     Route: 065
  9. PIPERACILLIN [Suspect]
     Active Substance: PIPERACILLIN
     Indication: Bullous erysipelas
  10. METRONIDAZOLE [Suspect]
     Active Substance: METRONIDAZOLE
     Indication: Bullous erysipelas
     Dosage: 500 MILLIGRAM, Q3D
     Route: 042
  11. METRONIDAZOLE [Suspect]
     Active Substance: METRONIDAZOLE
     Indication: Escherichia infection
     Dosage: 500 MILLIGRAM, Q3D
     Route: 042
  12. TETANUS TOXOID ADSORBED (VACCINE) [Concomitant]
     Active Substance: CLOSTRIDIUM TETANI TOXOID ANTIGEN (FORMALDEHYDE INACTIVATED)
     Indication: Prophylaxis
     Dosage: UNK
     Route: 065
  13. UNSPECIFIED INGREDIENT [Concomitant]
     Active Substance: UNSPECIFIED INGREDIENT
     Indication: Product used for unknown indication
     Dosage: UNK
     Route: 065
  14. VANCOMYCIN [Concomitant]
     Active Substance: VANCOMYCIN
     Indication: Clostridium difficile colitis
     Dosage: 180 MILLIGRAM, BID
     Route: 048
  15. AZATHIOPRINE [Concomitant]
     Active Substance: AZATHIOPRINE
     Indication: Clostridium difficile colitis
     Dosage: UNK
     Route: 065

REACTIONS (4)
  - Septic shock [Recovered/Resolved]
  - Bullous erysipelas [Recovered/Resolved]
  - Clostridium difficile colitis [Recovered/Resolved]
  - Drug ineffective [Unknown]
